FAERS Safety Report 9696788 (Version 3)
Quarter: 2015Q3

REPORT INFORMATION
  Report Type: Spontaneous
  Country: US (occurrence: US)
  Receive Date: 20131119
  Receipt Date: 20150803
  Transmission Date: 20151125
  Serious: Yes (Other)
  Sender: FDA-Public Use
  Company Number: US-GILEAD-2007-0014553

PATIENT
  Sex: Female
  Weight: 51.71 kg

DRUGS (7)
  1. QUININE SULFATE. [Concomitant]
     Active Substance: QUININE SULFATE
     Indication: RESTLESS LEGS SYNDROME
     Route: 048
  2. LEVOTHYROXINE. [Concomitant]
     Active Substance: LEVOTHYROXINE
     Indication: HYPOTHYROIDISM
     Route: 048
  3. VIAGRA [Concomitant]
     Active Substance: SILDENAFIL CITRATE
     Indication: PULMONARY ARTERIAL HYPERTENSION
     Route: 048
  4. LETAIRIS [Suspect]
     Active Substance: AMBRISENTAN
     Indication: PULMONARY ARTERIAL HYPERTENSION
     Route: 048
     Dates: start: 20071105
  5. LASIX [Concomitant]
     Active Substance: FUROSEMIDE
     Indication: PULMONARY ARTERIAL HYPERTENSION
     Route: 048
  6. ATENOLOL. [Concomitant]
     Active Substance: ATENOLOL
     Indication: ESSENTIAL HYPERTENSION
     Route: 048
  7. ZANTAC [Concomitant]
     Active Substance: RANITIDINE HYDROCHLORIDE
     Indication: GASTROOESOPHAGEAL REFLUX DISEASE
     Route: 048

REACTIONS (2)
  - Oedema peripheral [Not Recovered/Not Resolved]
  - Limb discomfort [Unknown]
